FAERS Safety Report 20969428 (Version 5)
Quarter: 2023Q1

REPORT INFORMATION
  Report Type: Report from Study
  Country: FI (occurrence: FI)
  Receive Date: 20220616
  Receipt Date: 20230330
  Transmission Date: 20230417
  Serious: Yes (Hospitalization, Other)
  Sender: FDA-Public Use
  Company Number: FI-MYLANLABS-2022M1045021

PATIENT
  Age: 13 Year
  Sex: Male

DRUGS (19)
  1. CLOZAPINE [Suspect]
     Active Substance: CLOZAPINE
     Indication: Psychotic symptom
     Dosage: UNK (??-???-2020)
     Route: 065
     Dates: end: 202205
  2. CLOZAPINE [Suspect]
     Active Substance: CLOZAPINE
     Indication: Schizophrenia
     Dosage: 475 MILLIGRAM, QD (05-MAY-2020)
     Route: 048
     Dates: end: 2021
  3. CLOZAPINE [Suspect]
     Active Substance: CLOZAPINE
     Indication: Psychotic disorder
     Dosage: 500 MILLIGRAM, QD (150 MG + 350 MG) (??-???-2021 )
     Route: 048
     Dates: end: 20220526
  4. CLOZAPINE [Suspect]
     Active Substance: CLOZAPINE
     Dosage: 500 MILLIGRAM, QD (200+300 MG) START DATE: OCT 2022, STOP DATE: UNK DATE IN 2022
     Route: 048
  5. CLOZAPINE [Suspect]
     Active Substance: CLOZAPINE
     Dosage: 525 MILLIGRAM, QD (200+325MG)START DATE: 2022
     Route: 048
  6. CLOZAPINE [Suspect]
     Active Substance: CLOZAPINE
     Dosage: 500 MILLIGRAM, QD
     Route: 048
  7. CLOZAPINE [Suspect]
     Active Substance: CLOZAPINE
     Dosage: UNK START DATE ??-???-2021 00:00
     Route: 065
     Dates: end: 202205
  8. PROPRANOLOL HYDROCHLORIDE [Concomitant]
     Active Substance: PROPRANOLOL HYDROCHLORIDE
     Dosage: 1 DOSAGE FORM, BID (TWICE DAILY)
     Route: 048
  9. LISDEXAMFETAMINE DIMESYLATE [Concomitant]
     Active Substance: LISDEXAMFETAMINE DIMESYLATE
     Dosage: 1 DOSAGE FORM, QD
     Route: 048
  10. MELATOSELL [Concomitant]
     Indication: Sleep disorder
     Dosage: 1 DOSAGE FORM, QD
     Route: 048
  11. SANASOL [Concomitant]
     Dosage: UNK
     Route: 065
  12. POLYETHYLENE GLYCOL 4000 [Concomitant]
     Active Substance: POLYETHYLENE GLYCOL 4000
     Dosage: 1 DOSAGE FORM, QD, POWDER/SOLUTION
     Route: 048
  13. POLYETHYLENE GLYCOL 4000 [Concomitant]
     Active Substance: POLYETHYLENE GLYCOL 4000
     Dosage: 1 DOSAGE FORM, QD (WHEN NEEDED, MAXIMUM 3 TIMES DAILY)
     Route: 048
  14. OLANZAPINE [Concomitant]
     Active Substance: OLANZAPINE
     Dosage: 0.5 DOSAGE FORM (WHEN NEEDED, MAXIMUM 5 MG DAILY)
     Route: 048
  15. ATROVENT [Concomitant]
     Active Substance: IPRATROPIUM BROMIDE
     Indication: Salivary hypersecretion
     Dosage: 2 SPRAY, DAILY WHEN NEEDED
     Route: 060
  16. Levozin [Concomitant]
     Dosage: UNK, PM ( IN THE EVENING)
     Route: 065
  17. INTUNIV [Concomitant]
     Active Substance: GUANFACINE HYDROCHLORIDE
     Dosage: UNK
     Route: 065
  18. LATUDA [Concomitant]
     Active Substance: LURASIDONE HYDROCHLORIDE
     Indication: Sleep disorder
     Dosage: UNK
     Route: 065
  19. MELATONIN [Concomitant]
     Active Substance: MELATONIN
     Indication: Sleep disorder
     Dosage: UNK
     Route: 065

REACTIONS (9)
  - Neutropenia [Unknown]
  - Leukopenia [Recovered/Resolved]
  - Neutrophil count abnormal [Recovered/Resolved]
  - White blood cell count abnormal [Recovered/Resolved]
  - Influenza [Recovered/Resolved]
  - Insomnia [Unknown]
  - Antipsychotic drug level increased [Unknown]
  - Off label use [Recovered/Resolved]
  - Drug ineffective for unapproved indication [Recovered/Resolved]

NARRATIVE: CASE EVENT DATE: 20200101
